FAERS Safety Report 15577072 (Version 1)
Quarter: 2018Q4

REPORT INFORMATION
  Report Type: Spontaneous
  Country: IT (occurrence: IT)
  Receive Date: 20181101
  Receipt Date: 20181101
  Transmission Date: 20190205
  Serious: Yes (Hospitalization)
  Sender: FDA-Public Use
  Company Number: IT-ASTRAZENECA-2018SF41997

PATIENT
  Age: 49 Year
  Sex: Male
  Weight: 80 kg

DRUGS (2)
  1. QUETIAPINE. [Suspect]
     Active Substance: QUETIAPINE
     Indication: DRUG ABUSE
     Dosage: 6 G, ONCE/SINGLE ADMINISTRATION
     Route: 048
     Dates: start: 20180901, end: 20180901
  2. SODIUM VALPROATE [Concomitant]
     Active Substance: VALPROATE SODIUM
     Indication: BIPOLAR DISORDER
     Dosage: 1.5G UNKNOWN
     Route: 048

REACTIONS (2)
  - Drug abuse [Recovering/Resolving]
  - Psychomotor hyperactivity [Recovering/Resolving]

NARRATIVE: CASE EVENT DATE: 20180901
